FAERS Safety Report 17794908 (Version 1)
Quarter: 2020Q2

REPORT INFORMATION
  Report Type: Spontaneous
  Country: NL (occurrence: NL)
  Receive Date: 20200515
  Receipt Date: 20200515
  Transmission Date: 20200714
  Serious: Yes (Other)
  Sender: FDA-Public Use
  Company Number: NL-MYLANLABS-2020M1047827

PATIENT
  Sex: Female

DRUGS (6)
  1. TAMOXIFEN [Suspect]
     Active Substance: TAMOXIFEN
     Indication: BREAST CANCER
     Dosage: UNK
     Route: 065
     Dates: start: 201709
  2. PALBOCICLIB [Suspect]
     Active Substance: PALBOCICLIB
     Indication: BREAST CANCER
     Dosage: UNK
     Route: 065
  3. ZOLEDRONIC ACID [Suspect]
     Active Substance: ZOLEDRONIC ACID
     Indication: BREAST CANCER
     Dosage: UNK
     Route: 065
     Dates: start: 201811
  4. PACLITAXEL. [Suspect]
     Active Substance: PACLITAXEL
     Indication: BREAST CANCER
     Dosage: UNK OT, QW
     Route: 065
     Dates: start: 201907, end: 20200110
  5. CAPECITABINE. [Suspect]
     Active Substance: CAPECITABINE
     Indication: BREAST CANCER
     Dosage: UNK
     Route: 065
     Dates: start: 201901
  6. LUTEINIZING HORMONE-RELEASING HORMONE [Suspect]
     Active Substance: GONADORELIN
     Indication: BREAST CANCER
     Dosage: UNK
     Route: 065
     Dates: start: 201709

REACTIONS (4)
  - Metastases to liver [Unknown]
  - Adenocarcinoma [Unknown]
  - Metastases to bone [Unknown]
  - Activated PI3 kinase delta syndrome [Unknown]

NARRATIVE: CASE EVENT DATE: 201811
